FAERS Safety Report 8757842 (Version 1)
Quarter: 2012Q4

REPORT INFORMATION
  Report Type: 
  Country: CN (occurrence: CN)
  Receive Date: 20120828
  Receipt Date: 20120828
  Transmission Date: 20130627
  Serious: Yes (Other)
  Sender: FDA-Public Use
  Company Number: CN-ROCHE-1104924

PATIENT
  Age: 65 Year
  Sex: Female

DRUGS (5)
  1. ROCEPHIN [Suspect]
     Indication: URINARY TRACT INFECTION
     Route: 041
     Dates: start: 20090715, end: 20090716
  2. CALCIUM GLUCONATE [Concomitant]
     Indication: CEREBRAL INFARCTION
     Route: 041
     Dates: start: 20090714, end: 20090716
  3. RINGER^S LACTATE [Concomitant]
     Indication: FLUID REPLACEMENT
     Route: 041
     Dates: start: 20090714, end: 20090716
  4. VITAMIN C [Concomitant]
     Indication: FLUID REPLACEMENT
     Route: 041
     Dates: start: 20090714, end: 20090716
  5. POTASSIUM CHLORIDE [Concomitant]
     Indication: FLUID REPLACEMENT
     Route: 041
     Dates: start: 20090714, end: 20090716

REACTIONS (1)
  - Grand mal convulsion [Recovering/Resolving]
